FAERS Safety Report 5295461-2 (Version None)
Quarter: 2007Q2

REPORT INFORMATION
  Report Type: 
  Country: None (occurrence: None)
  Receive Date: 20070412
  Receipt Date: 20070405
  Transmission Date: 20071010
  Serious: Yes (Hospitalization)
  Sender: FDA-Public Use
  Company Number: FR-PFIZER INC-2007027543

PATIENT
  Age: 56 Year
  Sex: Female

DRUGS (6)
  1. CELEBREX [Suspect]
     Dosage: TEXT:3 DOSAGE FORMS-FREQ:INTERVAL: EVERY DAY
     Route: 048
  2. VALIUM [Suspect]
     Route: 048
  3. ACETAMINOPHEN W/ PROPOXYPHENE HCL [Suspect]
     Dosage: TEXT:6 DF-FREQ:INTERVAL: EVERY DAY
     Route: 048
  4. NOCTRAN 10 [Suspect]
     Route: 048
  5. RISPERDAL [Suspect]
     Route: 048
  6. EFFEXOR [Suspect]
     Route: 048

REACTIONS (1)
  - ORTHOSTATIC HYPOTENSION [None]
